FAERS Safety Report 20733140 (Version 1)
Quarter: 2022Q2

REPORT INFORMATION
  Report Type: Report from Study
  Country: US (occurrence: US)
  Receive Date: 20220421
  Receipt Date: 20220421
  Transmission Date: 20220721
  Serious: Yes (Life-Threatening, Other)
  Sender: FDA-Public Use
  Company Number: US-CELGENE-USA-20220303042

PATIENT
  Sex: Male
  Weight: 81.64 kg

DRUGS (3)
  1. POMALYST [Suspect]
     Active Substance: POMALIDOMIDE
     Indication: Plasma cell myeloma
     Dosage: 4 MILLIGRAM?4 MG ONCE DAILY
     Route: 048
     Dates: start: 202106
  2. REVLIMID [Suspect]
     Active Substance: LENALIDOMIDE
     Indication: Plasma cell myeloma
     Dosage: 25 MILLIGRAM
     Route: 048
     Dates: start: 20181027
  3. REVLIMID [Suspect]
     Active Substance: LENALIDOMIDE
     Dosage: 10 MILLIGRAM
     Route: 048
     Dates: start: 201907

REACTIONS (9)
  - Dizziness [Unknown]
  - Dyspnoea [Unknown]
  - Hypoaesthesia [Unknown]
  - Limb discomfort [Unknown]
  - Muscle spasms [Unknown]
  - Sluggishness [Unknown]
  - Rash [Unknown]
  - Weight decreased [Unknown]
  - Balance disorder [Unknown]
